FAERS Safety Report 7011569-5 (Version None)
Quarter: 2010Q3

REPORT INFORMATION
  Report Type: 
  Country: None (occurrence: None)
  Receive Date: 20100923
  Receipt Date: 20090331
  Transmission Date: 20110219
  Serious: No
  Sender: FDA-Public Use
  Company Number: US-WYE-H08418809

PATIENT
  Sex: Female
  Weight: 74.91 kg

DRUGS (3)
  1. PREMARIN [Suspect]
     Indication: OESTROGEN THERAPY
     Dosage: , FOR 5 DAYS
     Route: 048
     Dates: start: 20090301
  2. CLARINEX [Concomitant]
  3. SINGULAIR [Concomitant]

REACTIONS (4)
  - DIARRHOEA [None]
  - FLATULENCE [None]
  - MEDICATION RESIDUE [None]
  - NAUSEA [None]
